FAERS Safety Report 5310109-6 (Version None)
Quarter: 2007Q2

REPORT INFORMATION
  Report Type: 
  Country: None (occurrence: None)
  Receive Date: 20070427
  Receipt Date: 20070419
  Transmission Date: 20071010
  Serious: Yes (Hospitalization)
  Sender: FDA-Public Use
  Company Number: JP-MERCK-0704USA05400

PATIENT
  Age: 6 Year
  Sex: Female

DRUGS (8)
  1. SINGULAIR [Suspect]
     Route: 048
     Dates: start: 20070413, end: 20070414
  2. MUCODYNE [Suspect]
     Indication: NASOPHARYNGITIS
     Route: 048
     Dates: start: 20070405, end: 20070406
  3. MUCODYNE [Suspect]
     Indication: BRONCHITIS
     Route: 048
     Dates: start: 20070405, end: 20070406
  4. CLARITHROMYCIN [Suspect]
     Route: 048
     Dates: start: 20070405, end: 20070406
  5. ACETAMINOPHEN [Suspect]
     Route: 048
     Dates: start: 20070405, end: 20070406
  6. LOXONIN [Suspect]
     Route: 048
     Dates: start: 20070413, end: 20070414
  7. FLOMOX [Suspect]
     Route: 048
     Dates: start: 20070413, end: 20070414
  8. HOKUNALIN [Suspect]
     Route: 065
     Dates: start: 20070413, end: 20070414

REACTIONS (1)
  - STEVENS-JOHNSON SYNDROME [None]
